FAERS Safety Report 20579489 (Version 1)
Quarter: 2022Q1

REPORT INFORMATION
  Report Type: Spontaneous
  Country: IN (occurrence: IN)
  Receive Date: 20220310
  Receipt Date: 20220310
  Transmission Date: 20220423
  Serious: Yes (Hospitalization)
  Sender: FDA-Public Use
  Company Number: IN-PFIZER INC-2018257257

PATIENT
  Age: 52 Year
  Sex: Male

DRUGS (2)
  1. SUTENT [Suspect]
     Active Substance: SUNITINIB MALATE
     Indication: Metastatic renal cell carcinoma
     Dosage: 50 MG, 1X/DAY
     Route: 048
     Dates: start: 20170512
  2. SUTENT [Suspect]
     Active Substance: SUNITINIB MALATE
     Dosage: 37.5 MG, CYCLIC (2 WEEKS ON AND 1 WEEK OFF)

REACTIONS (14)
  - Diarrhoea [Unknown]
  - Pain [Unknown]
  - Blister [Unknown]
  - Furuncle [Unknown]
  - Metabolic disorder [Unknown]
  - Malaise [Unknown]
  - Rash [Unknown]
  - Gait inability [Unknown]
  - Stress [Unknown]
  - Illness [Unknown]
  - Spinal pain [Unknown]
  - Abdominal pain upper [Unknown]
  - Vertebroplasty [Unknown]
  - Neoplasm progression [Unknown]
